FAERS Safety Report 8283454-2 (Version None)
Quarter: 2012Q2

REPORT INFORMATION
  Report Type: 
  Country: None (occurrence: None)
  Receive Date: 20120413
  Receipt Date: 20120405
  Transmission Date: 20120825
  Serious: Yes (Death, Other)
  Sender: FDA-Public Use
  Company Number: NL-MPIJNJ-2012-02422

PATIENT

DRUGS (3)
  1. DEXAMETHASONE [Suspect]
     Indication: MULTIPLE MYELOMA
     Dosage: 20 MG, CYCLIC
     Route: 048
  2. IBUPROFEN [Concomitant]
     Indication: BONE PAIN
  3. VELCADE [Suspect]
     Indication: MULTIPLE MYELOMA
     Dosage: 1.3 MG/M2, CYCLIC
     Route: 042

REACTIONS (2)
  - HEPATITIS CHOLESTATIC [None]
  - HEPATIC FAILURE [None]
